FAERS Safety Report 6993838-8 (Version None)
Quarter: 2010Q3

REPORT INFORMATION
  Report Type: 
  Country: None (occurrence: None)
  Receive Date: 20100917
  Receipt Date: 20100617
  Transmission Date: 20110219
  Serious: No
  Sender: FDA-Public Use
  Company Number: US-ASTRAZENECA-2009UW19096

PATIENT
  Age: 526 Month
  Sex: Female
  Weight: 113.4 kg

DRUGS (10)
  1. SEROQUEL [Suspect]
     Indication: SLEEP DISORDER
     Route: 048
     Dates: start: 20040911
  2. SEROQUEL [Suspect]
     Dosage: 25-50 MG
     Route: 048
     Dates: start: 20050101, end: 20080301
  3. SEROQUEL [Suspect]
     Dosage: 25-75 MG AT NIGHT
     Route: 048
     Dates: start: 20050127
  4. ABILIFY [Concomitant]
     Dates: start: 20081001
  5. RISPERDAL [Concomitant]
  6. WELLBUTRIN [Concomitant]
     Dates: start: 20050127
  7. LEXAPRO [Concomitant]
     Dates: start: 20050214
  8. EFFEXOR [Concomitant]
     Dosage: 225 MG DOSE
     Dates: start: 20060109
  9. CYMBALTA [Concomitant]
     Dates: start: 20060911
  10. FLEXERIL [Concomitant]
     Dates: start: 20090513

REACTIONS (2)
  - OBESITY [None]
  - TYPE 2 DIABETES MELLITUS [None]
